FAERS Safety Report 8888850 (Version 2)
Quarter: 2013Q2

REPORT INFORMATION
  Report Type: Spontaneous
  Country: PT (occurrence: PT)
  Receive Date: 20121106
  Receipt Date: 20130429
  Transmission Date: 20140414
  Serious: Yes (Death, Other)
  Sender: FDA-Public Use
  Company Number: PHHY2012PT100457

PATIENT
  Age: 46 Year
  Sex: Female

DRUGS (2)
  1. PREDNISOLONE [Suspect]
     Dosage: 1 MG/KG, UNK
     Route: 042
  2. METHYLPREDNISOLONE [Suspect]

REACTIONS (2)
  - Multi-organ failure [Fatal]
  - Myopathy [Unknown]
